FAERS Safety Report 17420338 (Version 1)
Quarter: 2020Q1

REPORT INFORMATION
  Report Type: Spontaneous
  Country: FR (occurrence: FR)
  Receive Date: 20200214
  Receipt Date: 20200214
  Transmission Date: 20200409
  Serious: Yes (Death, Life-Threatening, Hospitalization, Other)
  Sender: FDA-Public Use
  Company Number: FR-MYLANLABS-2020M1015989

PATIENT
  Age: 62 Year
  Sex: Female

DRUGS (3)
  1. PARACETAMOL + TRAMADOL [Concomitant]
     Active Substance: ACETAMINOPHEN\TRAMADOL
     Indication: EAR PAIN
     Dosage: UNK
  2. CEFTRIAXONE. [Suspect]
     Active Substance: CEFTRIAXONE
     Indication: MENINGITIS PNEUMOCOCCAL
     Dosage: 3 GRAM, QD
  3. DEXAMETHASONE. [Suspect]
     Active Substance: DEXAMETHASONE
     Indication: MENINGITIS PNEUMOCOCCAL
     Dosage: 10 MILLIGRAM, Q6H

REACTIONS (7)
  - Drug resistance [Fatal]
  - Treatment failure [Fatal]
  - Cerebral ischaemia [Fatal]
  - Central nervous system vasculitis [Fatal]
  - Staphylococcal sepsis [Unknown]
  - Overdose [Recovered/Resolved]
  - Brain injury [Unknown]
